FAERS Safety Report 6422228-1 (Version None)
Quarter: 2009Q4

REPORT INFORMATION
  Report Type: 
  Country: None (occurrence: None)
  Receive Date: 20091030
  Receipt Date: 20091027
  Transmission Date: 20100525
  Serious: Yes (Death)
  Sender: FDA-Public Use
  Company Number: PHEH2009US14513

PATIENT
  Sex: Male

DRUGS (1)
  1. EXJADE [Suspect]
     Dosage: 2000 MG DAILY
     Route: 048
     Dates: start: 20090304, end: 20090914

REACTIONS (1)
  - HAEMORRHAGE [None]
